FAERS Safety Report 12564589 (Version 1)
Quarter: 2016Q3

REPORT INFORMATION
  Report Type: Spontaneous
  Country: US (occurrence: US)
  Receive Date: 20160718
  Receipt Date: 20160718
  Transmission Date: 20161109
  Serious: No
  Sender: FDA-Public Use
  Company Number: US-ASTRAZENECA-2016SE74308

PATIENT
  Sex: Female

DRUGS (2)
  1. NARCOTICS [Concomitant]
     Active Substance: UNSPECIFIED INGREDIENT
  2. MOVANTIK [Suspect]
     Active Substance: NALOXEGOL OXALATE
     Route: 048

REACTIONS (2)
  - Gastrointestinal pain [Unknown]
  - Pancreatitis [Unknown]
